FAERS Safety Report 7304531-6 (Version None)
Quarter: 2011Q1

REPORT INFORMATION
  Report Type: 
  Country: None (occurrence: None)
  Receive Date: 20110221
  Receipt Date: 20100812
  Transmission Date: 20110831
  Serious: No
  Sender: FDA-Public Use
  Company Number: PHHY2010US53638

PATIENT
  Sex: Female
  Weight: 88 kg

DRUGS (7)
  1. SYNTHROID [Concomitant]
  2. ESTRADIOL [Concomitant]
  3. PROTONIX [Concomitant]
  4. HYDROCHLOROTHIAZIDE [Concomitant]
  5. CYMBALTA [Concomitant]
  6. TASIGNA [Suspect]
     Indication: LYMPHOCYTIC LEUKAEMIA
     Dosage: 600 MG/DAY
     Route: 048
     Dates: start: 20100514
  7. ASPIRIN [Concomitant]

REACTIONS (1)
  - LABELLED DRUG-FOOD INTERACTION MEDICATION ERROR [None]
